FAERS Safety Report 7258470-X (Version None)
Quarter: 2011Q1

REPORT INFORMATION
  Report Type: 
  Country: None (occurrence: None)
  Receive Date: 20110129
  Receipt Date: 20100824
  Transmission Date: 20110831
  Serious: Yes (Hospitalization)
  Sender: FDA-Public Use
  Company Number: US-ABBOTT-10P-163-0665399-00

PATIENT
  Sex: Female

DRUGS (3)
  1. HUMIRA [Suspect]
     Indication: PRODUCT USED FOR UNKNOWN INDICATION
     Route: 058
     Dates: end: 20100329
  2. HUMIRA [Suspect]
     Route: 058
     Dates: end: 20100329
  3. HUMIRA [Suspect]
     Dates: start: 20100401

REACTIONS (2)
  - PNEUMONIA [None]
  - FEELING ABNORMAL [None]
